FAERS Safety Report 21176775 (Version 5)
Quarter: 2022Q3

REPORT INFORMATION
  Report Type: Spontaneous
  Country: ES (occurrence: ES)
  Receive Date: 20220805
  Receipt Date: 20220916
  Transmission Date: 20221027
  Serious: Yes (Hospitalization)
  Sender: FDA-Public Use
  Company Number: None

PATIENT
  Age: 72 Year
  Sex: Male

DRUGS (6)
  1. LANSOPRAZOLE [Suspect]
     Active Substance: LANSOPRAZOLE
     Indication: Prophylaxis against gastrointestinal ulcer
     Dosage: (2598A), THERAPY DURATION : 52 DAYS
     Route: 065
     Dates: start: 20220413, end: 20220603
  2. BUPROPION HYDROCHLORIDE [Suspect]
     Active Substance: BUPROPION HYDROCHLORIDE
     Indication: Product used for unknown indication
     Dosage: (1131CH)
     Route: 065
     Dates: start: 20220601
  3. ONDANSETRON [Suspect]
     Active Substance: ONDANSETRON
     Indication: Prophylaxis of nausea and vomiting
     Dosage: (2575A)
     Route: 065
     Dates: start: 20220413
  4. FLUOROURACIL [Suspect]
     Active Substance: FLUOROURACIL
     Indication: Squamous cell carcinoma of the hypopharynx
     Dosage: THERAPY DURATION : 45 DAYS,  (272A)
     Route: 065
     Dates: start: 20220413, end: 20220527
  5. KEYTRUDA [Suspect]
     Active Substance: PEMBROLIZUMAB
     Indication: Squamous cell carcinoma of the hypopharynx
     Dosage: 1 VIAL OF 4 ML, STRENGTH : 25 MG/ML, FREQUENCY TIME : 3 WEEKS, THERAPY DURATION : 45 DAYS
     Route: 065
     Dates: start: 20220413, end: 20220527
  6. CYANOCOBALAMIN [Concomitant]
     Active Substance: CYANOCOBALAMIN
     Indication: Vitamin B12 deficiency
     Dosage: FREQUENCY TIME : 1 MONTHS,  (56A)

REACTIONS (1)
  - Toxic epidermal necrolysis [Recovered/Resolved]

NARRATIVE: CASE EVENT DATE: 20220603
